FAERS Safety Report 5511147-0 (Version None)
Quarter: 2007Q4

REPORT INFORMATION
  Report Type: 
  Country: None (occurrence: None)
  Receive Date: 20071107
  Receipt Date: 20071024
  Transmission Date: 20080405
  Serious: Yes (Hospitalization)
  Sender: FDA-Public Use
  Company Number: 2007002044

PATIENT
  Age: 57 Year
  Sex: Female

DRUGS (2)
  1. TARCEVA [Suspect]
     Indication: LUNG ADENOCARCINOMA
     Dosage: 150 MG, QD, ORAL
     Route: 048
     Dates: start: 20070705
  2. PANTOPRAZOLE SODIUM [Suspect]

REACTIONS (2)
  - HERPES VIRUS INFECTION [None]
  - UVEITIS [None]
